FAERS Safety Report 7227151-0 (Version None)
Quarter: 2011Q1

REPORT INFORMATION
  Report Type: 
  Country: None (occurrence: None)
  Receive Date: 20110114
  Receipt Date: 20110111
  Transmission Date: 20110831
  Serious: Yes (Hospitalization)
  Sender: FDA-Public Use
  Company Number: FR-SANOFI-AVENTIS-2011SA000166

PATIENT
  Age: 67 Year
  Sex: Female
  Weight: 74 kg

DRUGS (2)
  1. DOCETAXEL [Suspect]
     Route: 041
     Dates: start: 20101231, end: 20101231
  2. DOCETAXEL [Suspect]
     Indication: BREAST CANCER
     Route: 041
     Dates: start: 20101210, end: 20101210

REACTIONS (2)
  - ACCIDENTAL OVERDOSE [None]
  - NEUTROPENIA [None]
